FAERS Safety Report 4888484-6 (Version None)
Quarter: 2005Q4

REPORT INFORMATION
  Report Type: 
  Country: None (occurrence: None)
  Receive Date: 20051207
  Receipt Date: 20050517
  Transmission Date: 20060501
  Serious: Yes (Other)
  Sender: FDA-Public Use
  Company Number: 2005076604

PATIENT
  Age: 53 Year
  Sex: Male
  Weight: 102.0593 kg

DRUGS (1)
  1. VIAGRA [Suspect]
     Indication: ILL-DEFINED DISORDER
     Dosage: UNKNOWN (100 MG), ORAL
     Route: 048
     Dates: start: 20050516

REACTIONS (2)
  - ERECTION INCREASED [None]
  - NERVOUSNESS [None]
